FAERS Safety Report 19666587 (Version 1)
Quarter: 2021Q3

REPORT INFORMATION
  Report Type: Report from Study
  Country: ZA (occurrence: ZA)
  Receive Date: 20210806
  Receipt Date: 20210806
  Transmission Date: 20211014
  Serious: Yes (Death)
  Sender: FDA-Public Use
  Company Number: ZA-ASTRAZENECA-2021A662818

PATIENT
  Age: 85 Year
  Sex: Male

DRUGS (4)
  1. SYMBICORD TURBUHALER [Suspect]
     Active Substance: BUDESONIDE\FORMOTEROL FUMARATE DIHYDRATE
     Indication: ASTHMA
     Dosage: TWO TIMES A DAY160UG/INHAL TWO TIMES A DAY
     Route: 055
  2. AVAMYS [Concomitant]
     Active Substance: FLUTICASONE FUROATE
     Indication: RHINITIS ALLERGIC
     Dosage: 27.0UG AS REQUIRED
     Route: 045
  3. TOPRAZ [Concomitant]
     Indication: ASTHMA
     Route: 048
  4. PURESIS [Concomitant]
     Active Substance: FUROSEMIDE
     Indication: DRUG ABUSE
     Route: 048

REACTIONS (1)
  - Death [Fatal]

NARRATIVE: CASE EVENT DATE: 20210716
